FAERS Safety Report 9228196 (Version 3)
Quarter: 2014Q1

REPORT INFORMATION
  Report Type: Report from Study
  Country: JP (occurrence: JP)
  Receive Date: 20130412
  Receipt Date: 20140313
  Transmission Date: 20141002
  Serious: Yes (Hospitalization)
  Sender: FDA-Public Use
  Company Number: JP-VERTEX PHARMACEUTICALS INC.-2013-004713

PATIENT
  Age: 34 Year
  Sex: Male

DRUGS (7)
  1. VX-950 (TELAPREVIR) [Suspect]
     Indication: CHRONIC HEPATITIS C
     Dosage: 1500 MG, QD
     Route: 048
     Dates: start: 20120925
  2. PEGINTERFERON ALFA-2B [Suspect]
     Indication: CHRONIC HEPATITIS C
     Dosage: 1.4 ?G/KG, QW
     Route: 058
     Dates: start: 20120925, end: 20130218
  3. PEGINTERFERON ALFA-2B [Suspect]
     Dosage: 1.1 ?G/KG, QW
     Route: 058
     Dates: start: 20130313, end: 20130313
  4. PEGINTERFERON ALFA-2B [Suspect]
     Dosage: 0.8 ?G/KG, QW
     Route: 058
     Dates: start: 20130323, end: 20130323
  5. RIBAVIRIN [Suspect]
     Indication: CHRONIC HEPATITIS C
     Dosage: 800 MG, QD
     Route: 048
     Dates: start: 20120925, end: 20130305
  6. ACTOS [Concomitant]
     Dosage: 15 MG, QD
     Route: 048
     Dates: end: 20130127
  7. ACTOS [Concomitant]
     Dosage: 7.5 MG, QD
     Route: 048
     Dates: start: 20130128

REACTIONS (2)
  - Hallucination, auditory [Recovered/Resolved]
  - Persecutory delusion [Recovered/Resolved]
